FAERS Safety Report 8205992-0 (Version None)
Quarter: 2012Q1

REPORT INFORMATION
  Report Type: 
  Country: None (occurrence: None)
  Receive Date: 20120309
  Receipt Date: 20120223
  Transmission Date: 20120608
  Serious: Yes (Hospitalization)
  Sender: FDA-Public Use
  Company Number: DSA_48805_2012

PATIENT
  Age: 16 Year
  Sex: Male

DRUGS (1)
  1. ENALAPRIL MALEATE [Suspect]
     Indication: ESSENTIAL HYPERTENSION
     Dosage: (20 MG, ORAL)
     Route: 048

REACTIONS (8)
  - GASTROINTESTINAL INFLAMMATION [None]
  - ARTERITIS [None]
  - COLITIS [None]
  - COUGH [None]
  - DIARRHOEA [None]
  - OBSTRUCTIVE AIRWAYS DISORDER [None]
  - BRONCHITIS [None]
  - CONDITION AGGRAVATED [None]
